FAERS Safety Report 13259825 (Version 2)
Quarter: 2017Q1

REPORT INFORMATION
  Report Type: Spontaneous
  Country: IT (occurrence: IT)
  Receive Date: 20170222
  Receipt Date: 20170301
  Transmission Date: 20170428
  Serious: Yes (Other)
  Sender: FDA-Public Use
  Company Number: IT-PFIZER INC-2017078105

PATIENT
  Age: 30 Year
  Sex: Female

DRUGS (7)
  1. CARBOLITHIUM [Suspect]
     Active Substance: LITHIUM CARBONATE
     Dosage: UNK
     Route: 048
     Dates: start: 20170108, end: 20170108
  2. LORMETAZEPAM [Suspect]
     Active Substance: LORMETAZEPAM
     Dosage: 10 ML, TOTAL
     Dates: start: 20170108, end: 20170108
  3. GABAPENTIN. [Suspect]
     Active Substance: GABAPENTIN
     Dosage: UNK
     Route: 048
     Dates: start: 20170108, end: 20170108
  4. TAVOR (LORAZEPAM) [Suspect]
     Active Substance: LORAZEPAM
     Dosage: UNK
     Dates: start: 20170108, end: 20170108
  5. OLANZAPINE. [Suspect]
     Active Substance: OLANZAPINE
     Dosage: 50 MG, TOTAL
     Route: 048
     Dates: start: 20170108, end: 20170108
  6. TRITTICO [Suspect]
     Active Substance: TRAZODONE HYDROCHLORIDE
     Dosage: UNK
     Route: 048
     Dates: start: 20170108, end: 20170108
  7. QUETIAPINE FUMARATE. [Suspect]
     Active Substance: QUETIAPINE FUMARATE
     Dosage: UNK
     Route: 048
     Dates: start: 20170108, end: 20170108

REACTIONS (4)
  - Intentional self-injury [Recovering/Resolving]
  - Drug abuse [Recovering/Resolving]
  - Confusional state [Recovering/Resolving]
  - Suicidal ideation [Recovering/Resolving]

NARRATIVE: CASE EVENT DATE: 20170108
